FAERS Safety Report 8181169-2 (Version None)
Quarter: 2012Q1

REPORT INFORMATION
  Report Type: 
  Country: None (occurrence: None)
  Receive Date: 20120302
  Receipt Date: 20120227
  Transmission Date: 20120608
  Serious: Yes (Other)
  Sender: FDA-Public Use
  Company Number: US-GLAXOSMITHKLINE-A0967657A

PATIENT
  Age: 61 Year
  Sex: Female

DRUGS (7)
  1. AMERGE [Concomitant]
  2. AMBIEN [Concomitant]
  3. SEROQUEL [Concomitant]
  4. INDERAL [Concomitant]
  5. NEXIUM [Concomitant]
  6. TYKERB [Suspect]
     Indication: BREAST CANCER
     Route: 048
     Dates: start: 20120101
  7. LEXAPRO [Concomitant]

REACTIONS (4)
  - DIARRHOEA [None]
  - RECTAL HAEMORRHAGE [None]
  - RASH [None]
  - ANORECTAL DISCOMFORT [None]
